FAERS Safety Report 18473281 (Version 1)
Quarter: 2020Q4

REPORT INFORMATION
  Report Type: Spontaneous
  Country: BR (occurrence: BR)
  Receive Date: 20201106
  Receipt Date: 20201106
  Transmission Date: 20210114
  Serious: Yes (Disabling)
  Sender: FDA-Public Use
  Company Number: BR-ABBVIE-20K-020-3637301-00

PATIENT
  Age: 42 Year
  Sex: Female
  Weight: 57 kg

DRUGS (9)
  1. PREBICTAL [Concomitant]
     Active Substance: PREGABALIN
     Indication: PRODUCT USED FOR UNKNOWN INDICATION
  2. MAGNATIL [Concomitant]
     Indication: PRODUCT USED FOR UNKNOWN INDICATION
  3. SUPRACAM [Concomitant]
     Indication: PRODUCT USED FOR UNKNOWN INDICATION
  4. PARACETAMOL [Concomitant]
     Active Substance: ACETAMINOPHEN
     Indication: PRODUCT USED FOR UNKNOWN INDICATION
  5. HUMIRA [Suspect]
     Active Substance: ADALIMUMAB
     Indication: BENIGN NEOPLASM
     Route: 058
     Dates: start: 2013, end: 201910
  6. PREDNISONE. [Concomitant]
     Active Substance: PREDNISONE
     Indication: PRODUCT USED FOR UNKNOWN INDICATION
  7. MELOXICAM;PRIDINOL MESILATE [Concomitant]
     Indication: PRODUCT USED FOR UNKNOWN INDICATION
  8. IBUPROFEN. [Concomitant]
     Active Substance: IBUPROFEN
     Indication: PRODUCT USED FOR UNKNOWN INDICATION
  9. XUMER [Concomitant]
     Indication: PRODUCT USED FOR UNKNOWN INDICATION

REACTIONS (14)
  - Investigation abnormal [Unknown]
  - Joint stiffness [Unknown]
  - Arthralgia [Recovering/Resolving]
  - Pain in extremity [Not Recovered/Not Resolved]
  - Arthritis [Not Recovered/Not Resolved]
  - Off label use [Unknown]
  - Emotional disorder [Not Recovered/Not Resolved]
  - Gait inability [Unknown]
  - Pain [Unknown]
  - C-reactive protein increased [Unknown]
  - Immunodeficiency [Unknown]
  - Injection site pain [Unknown]
  - Anti-cyclic citrullinated peptide antibody positive [Unknown]
  - Arthralgia [Unknown]

NARRATIVE: CASE EVENT DATE: 202006
